FAERS Safety Report 8230166-7 (Version None)
Quarter: 2012Q1

REPORT INFORMATION
  Report Type: 
  Country: None (occurrence: None)
  Receive Date: 20120323
  Receipt Date: 20120319
  Transmission Date: 20120608
  Serious: Yes (Death)
  Sender: FDA-Public Use
  Company Number: US-PFIZER INC-2012071748

PATIENT
  Sex: Male

DRUGS (1)
  1. TORISEL [Suspect]
     Indication: SALIVARY GLAND CANCER
     Dosage: 25 MG, UNK
     Dates: start: 20111213

REACTIONS (2)
  - DISEASE PROGRESSION [None]
  - SALIVARY GLAND CANCER [None]
